FAERS Safety Report 14651615 (Version 2)
Quarter: 2018Q2

REPORT INFORMATION
  Report Type: Report from Study
  Country: US (occurrence: US)
  Receive Date: 20180317
  Receipt Date: 20180618
  Transmission Date: 20180711
  Serious: No
  Sender: FDA-Public Use
  Company Number: PHEH2018US010528

PATIENT
  Age: 60 Year
  Sex: Female

DRUGS (1)
  1. COSENTYX [Suspect]
     Active Substance: SECUKINUMAB
     Indication: PRODUCT USED FOR UNKNOWN INDICATION
     Route: 058

REACTIONS (6)
  - Pruritus [Unknown]
  - Condition aggravated [Recovered/Resolved]
  - Alopecia [Unknown]
  - Skin fissures [Unknown]
  - Stress [Unknown]
  - Pain [Unknown]

NARRATIVE: CASE EVENT DATE: 201802
